FAERS Safety Report 4445160-1 (Version None)
Quarter: 2004Q3

REPORT INFORMATION
  Report Type: 
  Country: None (occurrence: None)
  Receive Date: 20040907
  Receipt Date: 20040824
  Transmission Date: 20050211
  Serious: Yes (Life-Threatening, Other)
  Sender: FDA-Public Use
  Company Number: 2004054993

PATIENT
  Age: 68 Year
  Sex: Female

DRUGS (5)
  1. UNASYN [Suspect]
     Indication: BACTERIAL INFECTION
     Dosage: 9 GRAM (3 GRAM, 3 IN 1D), INTRAVENOUS
     Route: 042
     Dates: start: 20040807, end: 20040810
  2. ZOLOFT [Suspect]
     Indication: ILL-DEFINED DISORDER
     Dosage: 50 MG (50 MG, 1 IN 1 D), ORAL
     Route: 048
     Dates: start: 20040804, end: 20040809
  3. AMITRIPTYLINE HYDROCHLORIDE [Suspect]
     Indication: ILL-DEFINED DISORDER
     Dosage: 14 MG, (40 MG/ML, 1 IN 1 D), ORAL
     Route: 048
     Dates: start: 20040804, end: 20040812
  4. HEPARIN-FRACTION (HEPARIN FRACTION) [Suspect]
     Indication: ILL-DEFINED DISORDER
  5. NADROPARIN CALCIUM (NADROPARIN CALCIUM) [Concomitant]

REACTIONS (6)
  - BACTERIAL INFECTION [None]
  - BLOOD FIBRINOGEN INCREASED [None]
  - BONE MARROW DEPRESSION [None]
  - CANDIDA SEROLOGY POSITIVE [None]
  - FIBRIN D DIMER INCREASED [None]
  - NEUTROPHIL PERCENTAGE INCREASED [None]
